FAERS Safety Report 6993635-3 (Version None)
Quarter: 2010Q3

REPORT INFORMATION
  Report Type: 
  Country: None (occurrence: None)
  Receive Date: 20100917
  Receipt Date: 20071107
  Transmission Date: 20110219
  Serious: Yes (Hospitalization, Other)
  Sender: FDA-Public Use
  Company Number: US-ASTRAZENECA-2007UW10981

PATIENT
  Age: 37 Year
  Sex: Male
  Weight: 104.3 kg

DRUGS (11)
  1. SEROQUEL [Suspect]
     Indication: BIPOLAR DISORDER
     Dosage: 25, 50, 100, 150, 200, 800 MG
     Route: 048
     Dates: start: 20020924
  2. SEROQUEL [Suspect]
     Route: 048
     Dates: start: 20030101, end: 20060101
  3. PROZAC [Concomitant]
     Dosage: 40-60 MG EVERY MORNING
     Route: 048
     Dates: start: 20030521
  4. ASPIRIN [Concomitant]
     Route: 048
     Dates: start: 20030521
  5. LISINOPRIL [Concomitant]
     Route: 048
     Dates: start: 20030521
  6. PREVACID [Concomitant]
     Route: 048
     Dates: start: 20030521
  7. PRAVACHOL [Concomitant]
     Route: 048
     Dates: start: 20030521
  8. ZYPREXA [Concomitant]
     Dosage: 10-20 MG EVERY DAY
     Route: 048
     Dates: start: 20030521
  9. ABILIFY [Concomitant]
     Dosage: 15-30 MG
     Route: 048
     Dates: start: 20040610
  10. ACTOS [Concomitant]
     Route: 048
     Dates: start: 20040610
  11. GEODON [Concomitant]
     Route: 048
     Dates: start: 20020924

REACTIONS (4)
  - PANCREATITIS [None]
  - PANCREATITIS ACUTE [None]
  - PANCREATITIS RELAPSING [None]
  - TYPE 2 DIABETES MELLITUS [None]
